FAERS Safety Report 5888961-5 (Version None)
Quarter: 2008Q3

REPORT INFORMATION
  Report Type: 
  Country: None (occurrence: None)
  Receive Date: 20080918
  Receipt Date: 20080918
  Transmission Date: 20090109
  Serious: Yes (Other)
  Sender: FDA-Public Use
  Company Number: None

PATIENT
  Age: 70 Year
  Sex: Female
  Weight: 62.5964 kg

DRUGS (2)
  1. ARICEPT [Suspect]
     Indication: COGNITIVE DISORDER
     Dosage: 5MG/DAY  ONCE A DAY  PO
     Route: 048
     Dates: start: 20071211, end: 20080108
  2. ARICEPT [Suspect]
     Indication: MULTIPLE SCLEROSIS
     Dosage: 5MG/DAY  ONCE A DAY  PO
     Route: 048
     Dates: start: 20071211, end: 20080108

REACTIONS (3)
  - DIZZINESS [None]
  - EXTRASYSTOLES [None]
  - FEELING ABNORMAL [None]
